FAERS Safety Report 15621422 (Version 2)
Quarter: 2018Q4

REPORT INFORMATION
  Report Type: Spontaneous
  Country: US (occurrence: US)
  Receive Date: 20181115
  Receipt Date: 20181120
  Transmission Date: 20190205
  Serious: Yes (Hospitalization, Other)
  Sender: FDA-Public Use
  Company Number: US-RADIUS HEALTH, INC.-2018US002852

PATIENT
  Age: 62 Year
  Sex: Female

DRUGS (1)
  1. TYMLOS [Suspect]
     Active Substance: ABALOPARATIDE
     Indication: OSTEOPOROSIS POSTMENOPAUSAL
     Dosage: 80 MCG
     Dates: start: 201807

REACTIONS (4)
  - Cervical vertebral fracture [Unknown]
  - Fall [Unknown]
  - Arthropathy [Unknown]
  - Product quality issue [Unknown]

NARRATIVE: CASE EVENT DATE: 20181105
